FAERS Safety Report 10031713 (Version 1)
Quarter: 2014Q1

REPORT INFORMATION
  Report Type: Spontaneous
  Country: US (occurrence: US)
  Receive Date: 20140324
  Receipt Date: 20140324
  Transmission Date: 20141002
  Serious: No
  Sender: FDA-Public Use
  Company Number: US-PFIZER INC-2014083640

PATIENT
  Age: 88 Year
  Sex: Female
  Weight: 61.22 kg

DRUGS (2)
  1. CELEBREX [Suspect]
     Indication: PAIN
     Dosage: 200 MG, 1X/DAY
     Dates: end: 2013
  2. CELEBREX [Suspect]
     Indication: RHEUMATOID ARTHRITIS

REACTIONS (1)
  - Pain [Recovered/Resolved]
